FAERS Safety Report 9972876 (Version 1)
Quarter: 2014Q1

REPORT INFORMATION
  Report Type: Spontaneous
  Country: US (occurrence: None)
  Receive Date: 20140128
  Receipt Date: 20140128
  Transmission Date: 20141002
  Serious: Yes (Hospitalization)
  Sender: FDA-Public Use
  Company Number: A-US2013-86258

PATIENT
  Age: 36 Year
  Sex: Male

DRUGS (2)
  1. TRACLEER [Suspect]
     Indication: PULMONARY ARTERIAL HYPERTENSION
     Route: 048
     Dates: end: 20130717
  2. COUMADIN (WARFARIN SODIUM) [Concomitant]

REACTIONS (8)
  - Dyspnoea [None]
  - Liver function test abnormal [None]
  - Catheterisation cardiac abnormal [None]
  - Dizziness [None]
  - Syncope [None]
  - Alanine aminotransferase increased [None]
  - Aspartate aminotransferase increased [None]
  - Blood bilirubin increased [None]
